FAERS Safety Report 8139621-1 (Version None)
Quarter: 2012Q1

REPORT INFORMATION
  Report Type: 
  Country: None (occurrence: None)
  Receive Date: 20120215
  Receipt Date: 20120210
  Transmission Date: 20120608
  Serious: Yes (Congenital Anomaly, Other)
  Sender: FDA-Public Use
  Company Number: US-PFIZER INC-2011158664

PATIENT
  Sex: Male
  Weight: 2.322 kg

DRUGS (9)
  1. ZOLOFT [Suspect]
     Indication: DEPRESSION
     Dosage: 50 MG, 1X/DAY
     Route: 064
     Dates: end: 20070101
  2. ZOLOFT [Suspect]
     Indication: ANXIETY DISORDER
     Dosage: 100 MG, 1X/DAY
     Route: 064
     Dates: start: 20070105, end: 20070401
  3. SYNTHROID [Concomitant]
     Dosage: 0.025 MG, 1X/DAY
     Route: 064
     Dates: start: 20070105
  4. METRONIDAZOLE [Concomitant]
     Dosage: 250 MG, 3X/DAY
     Route: 064
     Dates: start: 20061024
  5. ALLEGRA [Concomitant]
     Dosage: 180 MG, 1X/DAY
     Route: 064
     Dates: start: 20061206
  6. MULTI-VITAMINS [Concomitant]
     Dosage: 1 TABLET ONCE DAILY
     Route: 064
     Dates: start: 20060926
  7. ZANTAC [Concomitant]
     Dosage: 150 MG, 2X/DAY
     Route: 064
     Dates: start: 20061206
  8. ZOLOFT [Suspect]
     Indication: PANIC DISORDER
     Dosage: 150 MG, 1X/DAY
     Route: 064
     Dates: start: 20070405
  9. GYNAZOLE [Concomitant]
     Dosage: 1 APPLICATION PER VAGINAL AT NIGHT
     Route: 064
     Dates: start: 20060829

REACTIONS (5)
  - MATERNAL EXPOSURE TIMING UNSPECIFIED [None]
  - TALIPES [None]
  - ANKYLOGLOSSIA CONGENITAL [None]
  - PENILE ADHESION [None]
  - CONGENITAL PNEUMONIA [None]
